FAERS Safety Report 7943106-2 (Version None)
Quarter: 2011Q4

REPORT INFORMATION
  Report Type: 
  Country: None (occurrence: None)
  Receive Date: 20111128
  Receipt Date: 20111114
  Transmission Date: 20120403
  Serious: Yes (Other)
  Sender: FDA-Public Use
  Company Number: PHFR2011GB05957

PATIENT
  Sex: Male
  Weight: 88.9 kg

DRUGS (2)
  1. KEPPRA [Suspect]
  2. TEGRETOL [Suspect]
     Dosage: UNK DF, BID
     Route: 065

REACTIONS (2)
  - STRESS [None]
  - EPILEPSY [None]
